FAERS Safety Report 9434824 (Version 1)
Quarter: 2013Q3

REPORT INFORMATION
  Report Type: Spontaneous
  Country: DE (occurrence: ES)
  Receive Date: 20130801
  Receipt Date: 20130801
  Transmission Date: 20140515
  Serious: Yes (Other)
  Sender: FDA-Public Use
  Company Number: ES-FRI-1000047344

PATIENT
  Age: 59 Year
  Sex: Female
  Weight: 85 kg

DRUGS (4)
  1. ROFLUMILAST [Suspect]
     Indication: CHRONIC OBSTRUCTIVE PULMONARY DISEASE
     Dosage: 500 MCG
     Route: 048
     Dates: start: 20130221, end: 20130228
  2. ROFLUMILAST [Suspect]
     Dosage: 500 MCG
     Route: 048
     Dates: start: 20130307
  3. FOSTER [Concomitant]
     Indication: CHRONIC OBSTRUCTIVE PULMONARY DISEASE
     Route: 055
     Dates: start: 2009
  4. SPIRIVA [Concomitant]
     Indication: CHRONIC OBSTRUCTIVE PULMONARY DISEASE
     Route: 055
     Dates: start: 2009

REACTIONS (2)
  - Cystitis haemorrhagic [Not Recovered/Not Resolved]
  - Diarrhoea [Recovered/Resolved]
